FAERS Safety Report 19083416 (Version 1)
Quarter: 2021Q2

REPORT INFORMATION
  Report Type: Spontaneous
  Country: US (occurrence: US)
  Receive Date: 20210401
  Receipt Date: 20210401
  Transmission Date: 20210717
  Serious: Yes (Other)
  Sender: FDA-Public Use
  Company Number: US-SUN PHARMACEUTICAL INDUSTRIES LTD-2021R1-288583

PATIENT
  Sex: Male

DRUGS (3)
  1. LABETALOL [Suspect]
     Active Substance: LABETALOL\LABETALOL HYDROCHLORIDE
     Indication: HYPERTENSION
     Dosage: UNK
     Route: 064
  2. INSULIN [Suspect]
     Active Substance: INSULIN NOS
     Indication: GESTATIONAL DIABETES
     Dosage: UNK
     Route: 064
  3. ASPIRIN. [Suspect]
     Active Substance: ASPIRIN
     Indication: PROPHYLAXIS
     Dosage: UNK
     Route: 064

REACTIONS (3)
  - Fallot^s tetralogy [Recovering/Resolving]
  - Congenital arterial malformation [Recovering/Resolving]
  - Foetal exposure during pregnancy [Unknown]
